FAERS Safety Report 9367034 (Version 1)
Quarter: 2013Q2

REPORT INFORMATION
  Report Type: Spontaneous
  Country: US (occurrence: US)
  Receive Date: 20130625
  Receipt Date: 20130625
  Transmission Date: 20140414
  Serious: No
  Sender: FDA-Public Use
  Company Number: US-ENDO PHARMACEUTICALS INC.-LISI20130026

PATIENT
  Age: 53 Year
  Sex: Female

DRUGS (4)
  1. LISINOPRIL [Suspect]
     Indication: HYPERTENSION
     Route: 048
     Dates: start: 201304, end: 201304
  2. NORVASC [Suspect]
     Indication: HYPERTENSION
     Route: 048
     Dates: end: 201304
  3. NORVASC [Suspect]
     Route: 048
     Dates: start: 201304
  4. ATENOLOL [Concomitant]
     Indication: HYPERTENSION
     Route: 048

REACTIONS (9)
  - Cardiac failure congestive [Recovered/Resolved]
  - Psychotic disorder [Unknown]
  - Loss of consciousness [Recovered/Resolved]
  - Unresponsive to stimuli [Recovered/Resolved]
  - Renal failure [Recovered/Resolved]
  - Hypotension [Unknown]
  - Back pain [Unknown]
  - Fatigue [Unknown]
  - Confusional state [Unknown]
